FAERS Safety Report 6079173-3 (Version None)
Quarter: 2009Q1

REPORT INFORMATION
  Report Type: 
  Country: None (occurrence: None)
  Receive Date: 20090216
  Receipt Date: 20090212
  Transmission Date: 20090719
  Serious: Yes (Death)
  Sender: FDA-Public Use
  Company Number: B0556508A

PATIENT
  Age: 3 Year
  Sex: Male

DRUGS (5)
  1. ALKERAN [Suspect]
     Indication: BONE MARROW TRANSPLANT
     Route: 042
  2. BUSULFAN [Suspect]
     Indication: BONE MARROW TRANSPLANT
     Route: 065
  3. FLUDARABINE PHOSPHATE [Suspect]
     Indication: BONE MARROW TRANSPLANT
     Route: 065
  4. ETOPOSIDE [Concomitant]
     Route: 065
  5. IDARUBICIN HCL [Concomitant]
     Route: 065

REACTIONS (4)
  - CYSTITIS HAEMORRHAGIC [None]
  - DYSPNOEA [None]
  - ENGRAFTMENT SYNDROME [None]
  - INTERSTITIAL LUNG DISEASE [None]
